FAERS Safety Report 8791269 (Version 3)
Quarter: 2012Q4

REPORT INFORMATION
  Report Type: Spontaneous
  Country: JP (occurrence: None)
  Receive Date: 20120911
  Receipt Date: 20120926
  Transmission Date: 20130627
  Serious: Yes (Hospitalization)
  Sender: FDA-Public Use
  Company Number: ABR_00620_2012

PATIENT
  Age: 62 Year
  Sex: Male
  Weight: 62.9 kg

DRUGS (3)
  1. ERYTHROMYCIN [Suspect]
     Indication: DIFFUSE PANBRONCHIOLITIS
  2. CLARITHROMYCIN (CLARITHROMYCIN) [Suspect]
     Indication: DIFFUSE PANBRONCHIOLITIS
  3. CLARITHROMYCIN (CLARITHROMYCIN) [Suspect]
     Indication: DIFFUSE PANBRONCHIOLITIS

REACTIONS (3)
  - Pneumothorax [None]
  - Drug ineffective [None]
  - Pulmonary fibrosis [None]
